FAERS Safety Report 9457326 (Version 4)
Quarter: 2014Q4

REPORT INFORMATION
  Report Type: Report from Study
  Country: JP (occurrence: JP)
  Receive Date: 20130814
  Receipt Date: 20141017
  Transmission Date: 20150529
  Serious: Yes (Hospitalization)
  Sender: FDA-Public Use
  Company Number: PHHY2013JP086761

PATIENT
  Age: 66 Year
  Sex: Female

DRUGS (27)
  1. CLOZARIL [Suspect]
     Active Substance: CLOZAPINE
     Indication: SCHIZOPHRENIA
     Dosage: 12.5 MG, UNK
     Route: 048
     Dates: start: 20130322, end: 20130322
  2. INDERAL [Concomitant]
     Active Substance: PROPRANOLOL HYDROCHLORIDE
     Dosage: 20 MG, UNK
     Route: 048
     Dates: end: 20130613
  3. CLOZARIL [Suspect]
     Active Substance: CLOZAPINE
     Dosage: 150 MG, UNK
     Route: 048
     Dates: start: 20130405, end: 20130411
  4. CLOZARIL [Suspect]
     Active Substance: CLOZAPINE
     Dosage: 400 MG, UNK
     Route: 048
     Dates: start: 20130510, end: 20130516
  5. ARTANE [Concomitant]
     Active Substance: TRIHEXYPHENIDYL HYDROCHLORIDE
     Indication: PRODUCT USED FOR UNKNOWN INDICATION
     Dosage: 4 MG, UNK
     Route: 048
     Dates: end: 20130418
  6. MAGLAX [Concomitant]
     Active Substance: MAGNESIUM OXIDE
     Dosage: 3000 MG, UNK
     Route: 048
  7. CLOZARIL [Suspect]
     Active Substance: CLOZAPINE
     Dosage: 100 MG, UNK
     Route: 048
     Dates: start: 20130329, end: 20130404
  8. CLOZARIL [Suspect]
     Active Substance: CLOZAPINE
     Dosage: 200 MG, UNK
     Route: 048
     Dates: start: 20130412, end: 20130418
  9. INDERAL [Concomitant]
     Active Substance: PROPRANOLOL HYDROCHLORIDE
     Indication: PRODUCT USED FOR UNKNOWN INDICATION
     Dosage: 60 MG, UNK
     Route: 048
  10. MAGLAX [Concomitant]
     Active Substance: MAGNESIUM OXIDE
     Dosage: 1000 MG, UNK
     Route: 048
     Dates: end: 20130613
  11. CLOZARIL [Suspect]
     Active Substance: CLOZAPINE
     Dosage: 350 MG, UNK
     Route: 048
     Dates: start: 20130503, end: 20130509
  12. PURSENID [Concomitant]
     Dosage: 36 MG, UNK
     Route: 048
     Dates: end: 20130516
  13. MAGLAX [Concomitant]
     Active Substance: MAGNESIUM OXIDE
     Dosage: 2000 MG, UNK
     Route: 048
  14. LOXONIN [Concomitant]
     Active Substance: LOXOPROFEN SODIUM
     Indication: PRODUCT USED FOR UNKNOWN INDICATION
     Route: 065
     Dates: end: 20130613
  15. CLOZARIL [Suspect]
     Active Substance: CLOZAPINE
     Dosage: 450 MG, UNK
     Route: 048
     Dates: start: 20130517, end: 20130622
  16. INDERAL [Concomitant]
     Active Substance: PROPRANOLOL HYDROCHLORIDE
     Dosage: 30 MG, UNK
     Route: 048
  17. ROHYPNOL [Concomitant]
     Active Substance: FLUNITRAZEPAM
     Dosage: 2 MG, UNK
     Route: 048
  18. ROHYPNOL [Concomitant]
     Active Substance: FLUNITRAZEPAM
     Dosage: 1 MG, UNK
     Route: 048
     Dates: end: 20130418
  19. CLOZARIL [Suspect]
     Active Substance: CLOZAPINE
     Dosage: 25 MG, UNK
     Route: 048
     Dates: start: 20130323, end: 20130325
  20. WYPAX [Concomitant]
     Active Substance: LORAZEPAM
     Indication: PRODUCT USED FOR UNKNOWN INDICATION
     Dosage: 1.5 MG, UNK
     Route: 048
     Dates: start: 20130308, end: 20130328
  21. CLOZARIL [Suspect]
     Active Substance: CLOZAPINE
     Dosage: 50 MG, UNK
     Route: 048
     Dates: start: 20130326, end: 20130328
  22. LENDORMIN [Concomitant]
     Active Substance: BROTIZOLAM
     Indication: PRODUCT USED FOR UNKNOWN INDICATION
     Dosage: 0.25 MG, UNK
     Route: 048
     Dates: end: 20130502
  23. MAGLAX [Concomitant]
     Active Substance: MAGNESIUM OXIDE
     Indication: PRODUCT USED FOR UNKNOWN INDICATION
     Dosage: 1500 MG, UNK
     Route: 048
     Dates: start: 20130309
  24. CLOZARIL [Suspect]
     Active Substance: CLOZAPINE
     Dosage: 250 MG, UNK
     Route: 048
     Dates: start: 20130419, end: 20130425
  25. CLOZARIL [Suspect]
     Active Substance: CLOZAPINE
     Dosage: 300 MG, UNK
     Route: 048
     Dates: start: 20130426, end: 20130502
  26. PURSENID [Concomitant]
     Indication: PRODUCT USED FOR UNKNOWN INDICATION
     Dosage: 48 MG, UNK
     Route: 048
  27. ROHYPNOL [Concomitant]
     Active Substance: FLUNITRAZEPAM
     Indication: PRODUCT USED FOR UNKNOWN INDICATION
     Dosage: 4 MG, UNK
     Route: 048

REACTIONS (5)
  - Fracture [Not Recovered/Not Resolved]
  - Arthralgia [Unknown]
  - Vomiting [Recovered/Resolved]
  - Blood glucose increased [Unknown]
  - Glycosylated haemoglobin increased [Unknown]

NARRATIVE: CASE EVENT DATE: 20130610
